FAERS Safety Report 5445235-4 (Version None)
Quarter: 2007Q3

REPORT INFORMATION
  Report Type: 
  Country: None (occurrence: None)
  Receive Date: 20070730
  Receipt Date: 20070516
  Transmission Date: 20080115
  Serious: Yes (Other)
  Sender: FDA-Public Use
  Company Number: 241750

PATIENT
  Age: 45 Year
  Sex: Female
  Weight: 87.1 kg

DRUGS (7)
  1. RITUXAN [Suspect]
     Indication: RHEUMATOID ARTHRITIS
     Dosage: QOW, INTRAVENOUS
     Route: 042
     Dates: start: 20070322
  2. LEXAPRO [Concomitant]
  3. HYDROCHLOROTHIAZIDE [Concomitant]
  4. PROTONIX [Concomitant]
  5. CELEBREX [Concomitant]
  6. MOTRIN [Concomitant]
  7. CHOLESTIN (CHOLESTIN) [Concomitant]

REACTIONS (1)
  - PHARYNGEAL OEDEMA [None]
